FAERS Safety Report 14496953 (Version 1)
Quarter: 2018Q1

REPORT INFORMATION
  Report Type: Spontaneous
  Country: US (occurrence: US)
  Receive Date: 20180207
  Receipt Date: 20180207
  Transmission Date: 20180509
  Serious: No
  Sender: FDA-Public Use
  Company Number: US-PFIZER INC-2018052609

PATIENT
  Age: 51 Year
  Sex: Female

DRUGS (3)
  1. ARAVA [Suspect]
     Active Substance: LEFLUNOMIDE
     Dosage: UNK
     Dates: start: 201405, end: 201411
  2. METHOTREXATE SODIUM. [Suspect]
     Active Substance: METHOTREXATE SODIUM
     Dosage: UNK
     Dates: start: 201212, end: 201704
  3. RAYOS [Suspect]
     Active Substance: PREDNISONE
     Dosage: UNK
     Dates: start: 201706, end: 201711

REACTIONS (1)
  - Drug ineffective [Unknown]
